FAERS Safety Report 7983656-6 (Version None)
Quarter: 2011Q4

REPORT INFORMATION
  Report Type: 
  Country: None (occurrence: None)
  Receive Date: 20111215
  Receipt Date: 20111212
  Transmission Date: 20120403
  Serious: Yes (Hospitalization, Other)
  Sender: FDA-Public Use
  Company Number: JP-ABBOTT-11P-087-0863808-00

PATIENT
  Sex: Female

DRUGS (7)
  1. METHOTREXATE [Concomitant]
     Indication: RHEUMATOID ARTHRITIS
     Dates: start: 20100904
  2. PREDNISOLONE [Concomitant]
  3. CELECOXIB [Concomitant]
     Indication: RHEUMATOID ARTHRITIS
     Dates: start: 20100904
  4. HUMIRA [Suspect]
     Indication: RHEUMATOID ARTHRITIS
     Route: 058
     Dates: start: 20110507, end: 20111001
  5. PNEUMOCOCCUS VACCINE [Concomitant]
     Indication: PRODUCT USED FOR UNKNOWN INDICATION
     Dates: start: 20110917, end: 20110917
  6. PREDNISOLONE [Concomitant]
  7. PREDNISOLONE [Concomitant]
     Indication: PRODUCT USED FOR UNKNOWN INDICATION
     Dates: start: 20100904

REACTIONS (11)
  - PYREXIA [None]
  - RESPIRATORY DISORDER [None]
  - SPUTUM ABNORMAL [None]
  - FUNGAL TEST POSITIVE [None]
  - INFECTIOUS PERITONITIS [None]
  - C-REACTIVE PROTEIN INCREASED [None]
  - PLEURAL EFFUSION [None]
  - CARDIOMEGALY [None]
  - CANDIDIASIS [None]
  - RALES [None]
  - WHEEZING [None]
